FAERS Safety Report 15863474 (Version 1)
Quarter: 2018Q4

REPORT INFORMATION
  Report Type: Spontaneous
  Country: US (occurrence: US)
  Receive Date: 20181228
  Receipt Date: 20181228
  Transmission Date: 20190205
  Serious: No
  Sender: FDA-Public Use
  Company Number: None

PATIENT
  Age: 60 Year
  Sex: Male
  Weight: 73 kg

DRUGS (1)
  1. CHLORHEXIDINE GLUCONATE. [Suspect]
     Active Substance: CHLORHEXIDINE GLUCONATE
     Indication: DYSGEUSIA
     Dosage: ?          OTHER ROUTE:OTHER?
     Dates: start: 20181107, end: 20181118

REACTIONS (3)
  - Paraesthesia oral [None]
  - Hypoaesthesia oral [None]
  - Dysgeusia [None]

NARRATIVE: CASE EVENT DATE: 20181111
